FAERS Safety Report 9457530 (Version 1)
Quarter: 2013Q3

REPORT INFORMATION
  Report Type: Report from Study
  Country: JP (occurrence: JP)
  Receive Date: 20130814
  Receipt Date: 20130814
  Transmission Date: 20140515
  Serious: Yes (Hospitalization, Other)
  Sender: FDA-Public Use
  Company Number: JP-GENZYME-THYM-1003990

PATIENT
  Age: 16 Year
  Sex: Female
  Weight: 59 kg

DRUGS (20)
  1. THYMOGLOBULIN [Suspect]
     Indication: BONE MARROW CONDITIONING REGIMEN
     Dosage: 75 MG, QD
     Route: 065
     Dates: start: 20130121, end: 20130122
  2. FLUDARA [Suspect]
     Indication: EPSTEIN-BARR VIRUS INFECTION
     Dosage: UNK
     Route: 065
     Dates: start: 20130115, end: 20130119
  3. ALKERAN [Suspect]
     Indication: EPSTEIN-BARR VIRUS INFECTION
     Dosage: UNK
     Route: 065
     Dates: start: 20130120, end: 20130121
  4. PROGRAF [Suspect]
     Indication: PROPHYLAXIS AGAINST GRAFT VERSUS HOST DISEASE
     Dosage: UNK
     Route: 065
     Dates: start: 20130122, end: 20130301
  5. PREDONINE [Suspect]
     Indication: ENGRAFTMENT SYNDROME
     Dosage: UNK
     Route: 065
     Dates: start: 20130215, end: 20130306
  6. TAKEPRON [Concomitant]
     Indication: PROPHYLAXIS
     Dosage: UNK ( ORALLY DISINTEGRATING TABLET)
     Route: 048
     Dates: start: 20121225
  7. THYRADIN [Concomitant]
     Indication: AUTOIMMUNE THYROIDITIS
     Dosage: UNK
     Route: 065
     Dates: start: 20130108
  8. CRAVIT [Concomitant]
     Indication: INFECTION PROPHYLAXIS
     Dosage: UNK
     Route: 065
     Dates: start: 20130110, end: 20130201
  9. URSO [Concomitant]
     Indication: PROPHYLAXIS
     Dosage: UNK
     Route: 065
     Dates: start: 20130110, end: 20130410
  10. DIFLUCAN [Concomitant]
     Indication: INFECTION PROPHYLAXIS
     Dosage: UNK
     Route: 065
     Dates: start: 20130110, end: 20130121
  11. DIFLUCAN [Concomitant]
     Dosage: UNK
     Route: 065
     Dates: start: 20130228
  12. VALTREX [Concomitant]
     Indication: INFECTION PROPHYLAXIS
     Dosage: UNK
     Route: 065
     Dates: start: 20130118, end: 20130124
  13. VALTREX [Concomitant]
     Dosage: UNK
     Route: 065
     Dates: start: 20130221
  14. NOVO-HEPARIN [Concomitant]
     Indication: PROPHYLAXIS
     Dosage: UNK
     Route: 065
     Dates: start: 20130115, end: 20130306
  15. METHYLPREDNISOLONE [Concomitant]
     Indication: PROPHYLAXIS
     Dosage: UNK
     Route: 065
     Dates: start: 20130121, end: 20130122
  16. METHOTREXATE [Concomitant]
     Indication: PROPHYLAXIS AGAINST GRAFT VERSUS HOST DISEASE
     Dosage: UNK
     Route: 065
     Dates: start: 20130124, end: 20130203
  17. FUNGUARD [Concomitant]
     Indication: INFECTION PROPHYLAXIS
     Dosage: UNK
     Route: 065
     Dates: start: 20130122, end: 20130227
  18. ACICLOVIR [Concomitant]
     Indication: INFECTION PROPHYLAXIS
     Dosage: UNK
     Route: 065
     Dates: start: 20130125, end: 20130220
  19. GRACEPTOR [Concomitant]
     Indication: PROPHYLAXIS AGAINST GRAFT VERSUS HOST DISEASE
     Dosage: UNK
     Route: 065
     Dates: start: 20130301
  20. BENAMBAX [Concomitant]
     Indication: INFECTION PROPHYLAXIS
     Dosage: UNK
     Route: 065
     Dates: start: 20130326, end: 20130425

REACTIONS (9)
  - Bone marrow failure [Not Recovered/Not Resolved]
  - Menorrhagia [Recovered/Resolved]
  - Febrile neutropenia [Recovered/Resolved]
  - Pyrexia [Recovered/Resolved]
  - Chronic graft versus host disease [Unknown]
  - Cytomegalovirus test positive [Recovered/Resolved]
  - Supraventricular tachycardia [Recovered/Resolved]
  - Engraftment syndrome [Recovered/Resolved]
  - Mucous membrane disorder [Recovered/Resolved]
